FAERS Safety Report 6891513-1 (Version None)
Quarter: 2010Q3

REPORT INFORMATION
  Report Type: 
  Country: None (occurrence: None)
  Receive Date: 20100731
  Receipt Date: 20080324
  Transmission Date: 20110219
  Serious: No
  Sender: FDA-Public Use
  Company Number: US-PFIZER INC-001-0945-M0200299

PATIENT
  Sex: Female
  Weight: 73.94 kg

DRUGS (2)
  1. NEURONTIN [Suspect]
     Indication: MYELITIS TRANSVERSE
     Dosage: QID
     Route: 048
     Dates: start: 20010124
  2. NEURONTIN [Suspect]
     Indication: MYOPATHY

REACTIONS (3)
  - DIVERTICULITIS [None]
  - GASTROOESOPHAGEAL REFLUX DISEASE [None]
  - INCORRECT DOSE ADMINISTERED [None]
